FAERS Safety Report 7389114-4 (Version None)
Quarter: 2011Q2

REPORT INFORMATION
  Report Type: 
  Country: None (occurrence: None)
  Receive Date: 20110401
  Receipt Date: 20110322
  Transmission Date: 20111010
  Serious: Yes (Other)
  Sender: FDA-Public Use
  Company Number: US-JNJFOC-20110309354

PATIENT
  Age: 8 Year
  Sex: Male

DRUGS (3)
  1. BENADRYL [Suspect]
     Indication: OCULAR HYPERAEMIA
     Route: 048
  2. BENADRYL [Suspect]
     Indication: ALLERGY TO ANIMAL
     Route: 048
  3. BENADRYL [Suspect]
     Indication: HYPERSENSITIVITY
     Route: 048

REACTIONS (3)
  - PYREXIA [None]
  - OFF LABEL USE [None]
  - DYSPNOEA [None]
